FAERS Safety Report 9324772 (Version 3)
Quarter: 2013Q2

REPORT INFORMATION
  Report Type: Spontaneous
  Country: NL (occurrence: None)
  Receive Date: 20130529
  Receipt Date: 20130612
  Transmission Date: 20140414
  Serious: Yes (Hospitalization)
  Sender: FDA-Public Use
  Company Number: TPA2013A04111

PATIENT
  Age: 54 Year
  Sex: Male

DRUGS (6)
  1. ADENURIC [Suspect]
     Indication: GOUT
     Dosage: 80 MG, 1 IN 1 D
     Dates: start: 201303, end: 20130502
  2. ATORVASTATIN [Suspect]
  3. BUMETANIDE [Concomitant]
  4. EZETROL (EZETIMIBE) [Concomitant]
  5. ENTOCORT (BUDESONIDE) [Concomitant]
  6. IRBESARTAN [Concomitant]

REACTIONS (2)
  - Hypersensitivity [None]
  - Diabetes mellitus [None]
